FAERS Safety Report 20869157 (Version 1)
Quarter: 2022Q2

REPORT INFORMATION
  Report Type: Spontaneous
  Country: US (occurrence: None)
  Receive Date: 20220520
  Receipt Date: 20220520
  Transmission Date: 20220720
  Serious: No
  Sender: FDA-Public Use
  Company Number: None

PATIENT
  Age: 44 Year
  Sex: Female
  Weight: 61.23 kg

DRUGS (2)
  1. VERSED [Suspect]
     Active Substance: MIDAZOLAM HYDROCHLORIDE
  2. Baxter Spectrum IQ Pump [Concomitant]

REACTIONS (4)
  - Device alarm issue [None]
  - Agitation [None]
  - Drug delivery system malfunction [None]
  - Device infusion issue [None]

NARRATIVE: CASE EVENT DATE: 20220513
